FAERS Safety Report 8720100 (Version 2)
Quarter: 2012Q4

REPORT INFORMATION
  Report Type: 
  Country: US (occurrence: US)
  Receive Date: 20120813
  Receipt Date: 20120914
  Transmission Date: 20130627
  Serious: No
  Sender: FDA-Public Use
  Company Number: US-PFIZER INC-2012193667

PATIENT
  Age: 8 Week
  Sex: Female
  Weight: 5.44 kg

DRUGS (2)
  1. INFANT ADVIL CONCENTRATED DROPS [Suspect]
     Indication: PYREXIA
     Dosage: UNK, once a day
     Route: 048
     Dates: start: 20120807, end: 20120807
  2. INFANT ADVIL CONCENTRATED DROPS [Suspect]
     Indication: PAIN IN EXTREMITY

REACTIONS (2)
  - Drug administered to patient of inappropriate age [Unknown]
  - Screaming [Recovered/Resolved]
